FAERS Safety Report 13951679 (Version 2)
Quarter: 2017Q3

REPORT INFORMATION
  Report Type: Spontaneous
  Country: US (occurrence: US)
  Receive Date: 20170908
  Receipt Date: 20170912
  Transmission Date: 20171128
  Serious: Yes (Other)
  Sender: FDA-Public Use
  Company Number: US-GLAXOSMITHKLINE-US2017GSK139517

PATIENT
  Age: 68 Year
  Sex: Male

DRUGS (6)
  1. PRILOSEC [Concomitant]
     Active Substance: OMEPRAZOLE MAGNESIUM
  2. CARVEDILOL. [Concomitant]
     Active Substance: CARVEDILOL
  3. SPIRIVA [Concomitant]
     Active Substance: TIOTROPIUM BROMIDE MONOHYDRATE
  4. LOSARTAN. [Concomitant]
     Active Substance: LOSARTAN
  5. BREO ELLIPTA [Suspect]
     Active Substance: FLUTICASONE FUROATE\VILANTEROL TRIFENATATE
     Indication: CHRONIC OBSTRUCTIVE PULMONARY DISEASE
     Dosage: 1 PUFF(S), QD
     Route: 055
     Dates: start: 20170816
  6. ALLOPURINOL. [Concomitant]
     Active Substance: ALLOPURINOL

REACTIONS (13)
  - Wrong technique in device usage process [Unknown]
  - Candida infection [Recovering/Resolving]
  - Oral disorder [Unknown]
  - Gingival blister [Recovering/Resolving]
  - Gingival erythema [Unknown]
  - Gingival disorder [Unknown]
  - Peripheral swelling [Recovered/Resolved]
  - Dental care [Unknown]
  - Oral discharge [Unknown]
  - Gingival discomfort [Recovered/Resolved]
  - Oral bacterial infection [Unknown]
  - Gingival discolouration [Unknown]
  - Condition aggravated [Recovered/Resolved]

NARRATIVE: CASE EVENT DATE: 201708
